FAERS Safety Report 9003463 (Version 2)
Quarter: 2013Q1

REPORT INFORMATION
  Report Type: Spontaneous
  Country: SE (occurrence: SE)
  Receive Date: 20130108
  Receipt Date: 20130213
  Transmission Date: 20140127
  Serious: Yes (Disabling, Other)
  Sender: FDA-Public Use
  Company Number: CHPA2012SE024714

PATIENT
  Age: 86 Year
  Sex: Female

DRUGS (4)
  1. ARTROX [Suspect]
     Indication: OSTEOARTHRITIS
     Dosage: 625 MG, UNK
     Dates: start: 201210, end: 20121112
  2. ARTROX [Suspect]
     Dosage: UNK, UNK
     Dates: start: 1997
  3. CETIRIZINE [Suspect]
     Indication: HYPERSENSITIVITY
     Dosage: UNK, UNK
     Dates: start: 20121020
  4. CORTISONE [Suspect]
     Dosage: UNK, UNK

REACTIONS (8)
  - Brain oedema [Not Recovered/Not Resolved]
  - Pruritus [Not Recovered/Not Resolved]
  - Insomnia [Not Recovered/Not Resolved]
  - Rash [Not Recovered/Not Resolved]
  - Headache [Unknown]
  - Fatigue [Unknown]
  - Nausea [Unknown]
  - Rash pruritic [Not Recovered/Not Resolved]
